FAERS Safety Report 15213490 (Version 1)
Quarter: 2018Q3

REPORT INFORMATION
  Report Type: Spontaneous
  Country: US (occurrence: US)
  Receive Date: 20180702
  Receipt Date: 20180702
  Transmission Date: 20181010
  Serious: No
  Sender: FDA-Public Use
  Company Number: None

PATIENT
  Age: 59 Year
  Sex: Female

DRUGS (2)
  1. MEKINIST [Suspect]
     Active Substance: TRAMETINIB DIMETHYL SULFOXIDE
  2. TAFINLAR [Concomitant]
     Active Substance: DABRAFENIB MESYLATE

REACTIONS (3)
  - Chest pain [None]
  - Abdominal pain [None]
  - Malaise [None]

NARRATIVE: CASE EVENT DATE: 20180702
